FAERS Safety Report 7376895-9 (Version None)
Quarter: 2011Q1

REPORT INFORMATION
  Report Type: 
  Country: None (occurrence: None)
  Receive Date: 20110327
  Receipt Date: 20110315
  Transmission Date: 20110831
  Serious: Yes (Death, Hospitalization)
  Sender: FDA-Public Use
  Company Number: DE-CELGENEUS-062-20785-11030658

PATIENT
  Age: 70 Year
  Sex: Female
  Weight: 78.2 kg

DRUGS (7)
  1. HEPARIN [Concomitant]
     Indication: PROPHYLAXIS
     Dosage: 320 MILLIGRAM
     Route: 065
  2. THALIDOMIDE [Suspect]
     Indication: MULTIPLE MYELOMA
     Dosage: 50 MILLIGRAM
     Route: 048
     Dates: start: 20110217
  3. DEXAMETHASONE [Suspect]
     Indication: MULTIPLE MYELOMA
     Dosage: 320 MILLIGRAM
     Route: 048
  4. BONDRONAT [Concomitant]
     Route: 065
     Dates: start: 20110101
  5. VELCADE [Suspect]
     Dosage: 1.3 MILLIGRAM/SQ. METER
     Route: 051
     Dates: start: 20110217, end: 20110220
  6. THALIDOMIDE [Suspect]
     Dosage: 50 MILLIGRAM
     Route: 048
     Dates: end: 20110227
  7. VELCADE [Suspect]
     Indication: MULTIPLE MYELOMA
     Dosage: 1.3 MILLIGRAM/SQ. METER
     Route: 051
     Dates: start: 20110120, end: 20110131

REACTIONS (1)
  - MULTIPLE MYELOMA [None]
